FAERS Safety Report 15132537 (Version 1)
Quarter: 2018Q3

REPORT INFORMATION
  Report Type: Report from Study
  Country: None (occurrence: US)
  Receive Date: 20180712
  Receipt Date: 20180712
  Transmission Date: 20181010
  Serious: Yes (Other)
  Sender: FDA-Public Use
  Company Number: US-ABBVIE-18K-163-2246224-00

PATIENT
  Age: 64 Year
  Sex: Female

DRUGS (2)
  1. HUMIRA [Suspect]
     Active Substance: ADALIMUMAB
     Indication: PSORIATIC ARTHROPATHY
     Route: 058
     Dates: start: 20171009, end: 20180112
  2. HUMIRA [Suspect]
     Active Substance: ADALIMUMAB
     Route: 058
     Dates: start: 20180310, end: 20180417

REACTIONS (12)
  - Abdominal distension [Unknown]
  - Influenza [Recovering/Resolving]
  - Defaecation disorder [Unknown]
  - Eye swelling [Recovered/Resolved]
  - Vision blurred [Recovered/Resolved]
  - Sinusitis [Recovering/Resolving]
  - Impetigo [Recovered/Resolved]
  - Impetigo [Recovered/Resolved]
  - Abdominal pain [Unknown]
  - Iritis [Recovered/Resolved]
  - Macular oedema [Recovered/Resolved]
  - Constipation [Unknown]

NARRATIVE: CASE EVENT DATE: 20180112
